FAERS Safety Report 12813693 (Version 1)
Quarter: 2016Q4

REPORT INFORMATION
  Report Type: Spontaneous
  Country: US (occurrence: US)
  Receive Date: 20161005
  Receipt Date: 20161005
  Transmission Date: 20170207
  Serious: No
  Sender: FDA-Public Use
  Company Number: US-SA-2016SA159053

PATIENT
  Age: 69 Year
  Sex: Female

DRUGS (2)
  1. MELATONIN [Interacting]
     Active Substance: MELATONIN
     Dosage: START DATE: SINCE LONG TIME.
     Route: 065
  2. LEFLUNOMIDE WINTHROP [Suspect]
     Active Substance: LEFLUNOMIDE
     Indication: RHEUMATOID ARTHRITIS
     Dosage: START DATE: 5YEARS AGO.
     Route: 065

REACTIONS (4)
  - Pain [Not Recovered/Not Resolved]
  - Drug interaction [Not Recovered/Not Resolved]
  - Weight increased [Not Recovered/Not Resolved]
  - Arthritis [Not Recovered/Not Resolved]
